FAERS Safety Report 4941669-2 (Version None)
Quarter: 2006Q1

REPORT INFORMATION
  Report Type: 
  Country: None (occurrence: None)
  Receive Date: 20060313
  Receipt Date: 20060228
  Transmission Date: 20060701
  Serious: Yes (Death)
  Sender: FDA-Public Use
  Company Number: AU-ROCHE-438414

PATIENT
  Age: 75 Year
  Sex: Female

DRUGS (9)
  1. XELODA [Suspect]
     Indication: DRUG USE FOR UNKNOWN INDICATION
     Route: 048
  2. XELODA [Suspect]
     Route: 048
     Dates: start: 20050708, end: 20050717
  3. HERCEPTIN [Suspect]
     Indication: DRUG USE FOR UNKNOWN INDICATION
     Route: 042
  4. HERCEPTIN [Suspect]
     Route: 042
     Dates: start: 20050708, end: 20050715
  5. NAVELBINE [Suspect]
     Indication: DRUG USE FOR UNKNOWN INDICATION
     Route: 048
     Dates: start: 20050708, end: 20050715
  6. NAVOBAN [Concomitant]
  7. LASIX [Concomitant]
  8. FOLIC ACID [Concomitant]
  9. ALDACTONE [Concomitant]

REACTIONS (3)
  - CARDIAC ARREST [None]
  - DIARRHOEA [None]
  - PULMONARY OEDEMA [None]
